FAERS Safety Report 14953145 (Version 2)
Quarter: 2018Q3

REPORT INFORMATION
  Report Type: Spontaneous
  Country: JP (occurrence: JP)
  Receive Date: 20180530
  Receipt Date: 20180710
  Transmission Date: 20181010
  Serious: Yes (Death)
  Sender: FDA-Public Use
  Company Number: JP-PFIZER INC-2018145953

PATIENT
  Age: 72 Year
  Sex: Female

DRUGS (2)
  1. IBRANCE [Suspect]
     Active Substance: PALBOCICLIB
     Indication: BREAST CANCER
     Dosage: 125 MG, DAILY
     Route: 048
     Dates: start: 20180319, end: 20180326
  2. AROMASIN [Concomitant]
     Active Substance: EXEMESTANE
     Dosage: 25 (UNIT UNSPECIFIED) ONCE DAILY
     Route: 048
     Dates: start: 20180319, end: 20180326

REACTIONS (1)
  - Neoplasm progression [Fatal]
